FAERS Safety Report 13671857 (Version 3)
Quarter: 2017Q3

REPORT INFORMATION
  Report Type: Spontaneous
  Country: FR (occurrence: FR)
  Receive Date: 20170621
  Receipt Date: 20170807
  Transmission Date: 20171127
  Serious: Yes (Other)
  Sender: FDA-Public Use
  Company Number: FR-TEVA-780387ROM

PATIENT
  Age: 68 Year
  Sex: Female

DRUGS (3)
  1. CITALOPRAM BIOGARAN [Concomitant]
     Active Substance: CITALOPRAM HYDROBROMIDE
     Route: 065
  2. FEMARA [Concomitant]
     Active Substance: LETROZOLE
     Indication: BREAST CANCER
     Route: 065
     Dates: start: 201704
  3. DELURSAN 500 MG [Suspect]
     Active Substance: URSODIOL
     Indication: CHOLESTASIS
     Route: 048
     Dates: start: 2010

REACTIONS (2)
  - Reaction to excipient [Unknown]
  - Breast cancer [Unknown]

NARRATIVE: CASE EVENT DATE: 201611
